FAERS Safety Report 11976280 (Version 2)
Quarter: 2016Q1

REPORT INFORMATION
  Report Type: Spontaneous
  Country: US (occurrence: US)
  Receive Date: 20160129
  Receipt Date: 20160204
  Transmission Date: 20160526
  Serious: No
  Sender: FDA-Public Use
  Company Number: US-BAYER-2016-017937

PATIENT
  Sex: Female

DRUGS (1)
  1. ALEVE [Suspect]
     Active Substance: NAPROXEN SODIUM
     Dosage: 2 DF, BETWEEN 9:30 AND 10 PM
     Dates: start: 20160126, end: 20160126

REACTIONS (1)
  - Mobility decreased [None]

NARRATIVE: CASE EVENT DATE: 20160127
